FAERS Safety Report 24657137 (Version 1)
Quarter: 2024Q4

REPORT INFORMATION
  Report Type: Spontaneous
  Country: DE (occurrence: DE)
  Receive Date: 20241125
  Receipt Date: 20241125
  Transmission Date: 20250115
  Serious: Yes (Hospitalization)
  Sender: ESPERION THERAPEUTICS
  Company Number: DE-DAIICHI SANKYO EUROPE GMBH-DS-2024-109080-DE

PATIENT

DRUGS (3)
  1. BEMPEDOIC ACID [Suspect]
     Active Substance: BEMPEDOIC ACID
     Indication: Hypercholesterolaemia
     Dosage: 180 MG, BID
     Route: 065
     Dates: start: 20241010
  2. ROSUVASTATIN CALCIUM [Concomitant]
     Active Substance: ROSUVASTATIN CALCIUM
     Indication: Product used for unknown indication
     Dosage: UNK UNK, QD (0 0 1)
     Route: 065
  3. MOLSIDOMINE [Concomitant]
     Active Substance: MOLSIDOMINE
     Indication: Product used for unknown indication
     Dosage: UNK
     Route: 065

REACTIONS (4)
  - Circulatory collapse [Recovered/Resolved]
  - Occupational exposure to toxic agent [Unknown]
  - Overdose [Not Recovered/Not Resolved]
  - Dyspnoea [Not Recovered/Not Resolved]

NARRATIVE: CASE EVENT DATE: 20241001
